FAERS Safety Report 5292075-5 (Version None)
Quarter: 2007Q2

REPORT INFORMATION
  Report Type: 
  Country: None (occurrence: None)
  Receive Date: 20070406
  Receipt Date: 20070406
  Transmission Date: 20071010
  Serious: No
  Sender: FDA-Public Use
  Company Number: None

PATIENT
  Sex: Female
  Weight: 158.5 kg

DRUGS (3)
  1. CYTARABINE [Suspect]
     Dosage: 1260 MG; 180 MG IV OVER 24 HRS X 7 DAYS
     Dates: start: 20061003
  2. DAUNORUBICIN HCL [Suspect]
     Dosage: 243 MG; 81 MG IVPB DAILY X3 DAYS
     Route: 040
     Dates: start: 20061003
  3. MYLOTARG [Suspect]
     Dosage: 10.8 MG OVER 2 HRS
     Dates: start: 20061006

REACTIONS (2)
  - DISEASE PROGRESSION [None]
  - GENERAL PHYSICAL HEALTH DETERIORATION [None]
